FAERS Safety Report 24004152 (Version 1)
Quarter: 2024Q2

REPORT INFORMATION
  Report Type: Spontaneous
  Country: US (occurrence: US)
  Receive Date: 20240624
  Receipt Date: 20240624
  Transmission Date: 20240715
  Serious: No
  Sender: FDA-Public Use
  Company Number: US-REVANCE THERAPEUTICS INC.-US-REV-2024-000281

PATIENT

DRUGS (1)
  1. DAXIBOTULINUMTOXIN A-LANM [Suspect]
     Active Substance: DAXIBOTULINUMTOXIN A-LANM
     Indication: Skin wrinkling
     Dosage: 70 UNITS (28 U FOREHEAD LINES, 24 U GLABELLA, 12U PLATYSMAL BANDS)
     Route: 065
     Dates: start: 20240213

REACTIONS (3)
  - No adverse event [Unknown]
  - Underdose [Unknown]
  - Off label use [Unknown]

NARRATIVE: CASE EVENT DATE: 20240101
